FAERS Safety Report 5505990-1 (Version None)
Quarter: 2007Q4

REPORT INFORMATION
  Report Type: 
  Country: None (occurrence: None)
  Receive Date: 20071101
  Receipt Date: 20071101
  Transmission Date: 20080405
  Serious: No
  Sender: FDA-Public Use
  Company Number: None

PATIENT
  Age: 66 Year
  Sex: Female
  Weight: 62 kg

DRUGS (3)
  1. CIPROFLOXACIN [Suspect]
     Indication: ABDOMINAL INFECTION
     Dosage: 400MG X1 IV
     Route: 042
     Dates: start: 20071005
  2. ONDANSETRON [Suspect]
     Indication: NAUSEA
     Dosage: 8MG X1 IV
     Route: 042
     Dates: start: 20071005
  3. ZOFRAN [Concomitant]

REACTIONS (1)
  - ERYTHEMA [None]
